FAERS Safety Report 24339458 (Version 1)
Quarter: 2024Q3

REPORT INFORMATION
  Report Type: Spontaneous
  Country: CA (occurrence: CA)
  Receive Date: 20240919
  Receipt Date: 20240919
  Transmission Date: 20241016
  Serious: Yes (Other)
  Sender: ANI
  Company Number: CA-ANIPHARMA-2024-CA-004035

PATIENT
  Age: 53 Year
  Sex: Male

DRUGS (37)
  1. CANDESARTAN CILEXETIL [Suspect]
     Active Substance: CANDESARTAN CILEXETIL
     Indication: Product used for unknown indication
     Route: 048
  2. AZD-1222 [Suspect]
     Active Substance: AZD-1222
  3. EPINEPHRINE HYDROCHLORIDE [Suspect]
     Active Substance: EPINEPHRINE HYDROCHLORIDE
  4. ESCITALOPRAM [Suspect]
     Active Substance: ESCITALOPRAM OXALATE
  5. FUROSEMIDE [Suspect]
     Active Substance: FUROSEMIDE
  6. GABAPENTIN [Suspect]
     Active Substance: GABAPENTIN
  7. INFLIXIMAB [Suspect]
     Active Substance: INFLIXIMAB
  8. LEVOTHYROXINE SODIUM [Suspect]
     Active Substance: LEVOTHYROXINE SODIUM
  9. LISDEXAMFETAMINE DIMESYLATE [Suspect]
     Active Substance: LISDEXAMFETAMINE DIMESYLATE
  10. MEBEVERINE HYDROCHLORIDE [Suspect]
     Active Substance: MEBEVERINE HYDROCHLORIDE
  11. METFORMIN [Suspect]
     Active Substance: METFORMIN HYDROCHLORIDE
  12. OMEPRAZOLE [Suspect]
     Active Substance: OMEPRAZOLE
  13. OXYCODONE HYDROCHLORIDE [Suspect]
     Active Substance: OXYCODONE HYDROCHLORIDE
  14. PARA-AMINOSALICYLIC ACID [Suspect]
     Active Substance: AMINOSALICYLIC ACID
  15. TOZINAMERAN [Suspect]
     Active Substance: TOZINAMERAN
  16. VITAMIN D3 [Suspect]
     Active Substance: CHOLECALCIFEROL
  17. ASACOL [Suspect]
     Active Substance: MESALAMINE
  18. BUDESONIDE [Suspect]
     Active Substance: BUDESONIDE
  19. ENTYVIO [Suspect]
     Active Substance: VEDOLIZUMAB
  20. MESALAMINE [Suspect]
     Active Substance: MESALAMINE
  21. SULFASALAZINE [Suspect]
     Active Substance: SULFASALAZINE
  22. ACETAMINOPHEN [Concomitant]
     Active Substance: ACETAMINOPHEN
  23. DAPAGLIFLOZIN [Suspect]
     Active Substance: DAPAGLIFLOZIN
  24. AMLODIPINE BESYLATE [Concomitant]
     Active Substance: AMLODIPINE BESYLATE
  25. ATORVASTATIN CALCIUM [Concomitant]
     Active Substance: ATORVASTATIN CALCIUM
  26. BETNOVATE [Concomitant]
     Active Substance: BETAMETHASONE
  27. BISOPROLOL [Concomitant]
     Active Substance: BISOPROLOL\BISOPROLOL FUMARATE
  28. CALCIUM CARBONATE, MAGNESIUM CARBONATE HYDROXIDE [Concomitant]
  29. CALCIUM CARBONATE, SODIUM ALGINATE, SODIUM BICARBONATE [Concomitant]
  30. CALCIUM CARBONATE\CHOLECALCIFEROL [Concomitant]
     Active Substance: CALCIUM CARBONATE\CHOLECALCIFEROL
  31. CITALOPRAM HYDROCHLORIDE [Concomitant]
     Active Substance: CITALOPRAM HYDROCHLORIDE
  32. ADALIMUMAB [Suspect]
     Active Substance: ADALIMUMAB
  33. FELODIPINE [Suspect]
     Active Substance: FELODIPINE
  34. ESOMEPRAZOLE [Suspect]
     Active Substance: ESOMEPRAZOLE
  35. ROSUVASTATIN [Suspect]
     Active Substance: ROSUVASTATIN\ROSUVASTATIN CALCIUM
  36. BUDESONIDE [Suspect]
     Active Substance: BUDESONIDE
  37. ASPIRIN [Suspect]
     Active Substance: ASPIRIN

REACTIONS (47)
  - Abdominal discomfort [Unknown]
  - Colitis ulcerative [Unknown]
  - Condition aggravated [Unknown]
  - Confusional state [Unknown]
  - Deep vein thrombosis [Unknown]
  - Depression [Unknown]
  - Dysgeusia [Unknown]
  - Eczema [Unknown]
  - Fatigue [Unknown]
  - Frequent bowel movements [Unknown]
  - Gingival pain [Unknown]
  - Accidental overdose [Unknown]
  - Haematochezia [Unknown]
  - Headache [Unknown]
  - Hypopnoea [Unknown]
  - Impaired work ability [Unknown]
  - Inappropriate schedule of product administration [Unknown]
  - Intentional product use issue [Unknown]
  - Loss of personal independence in daily activities [Unknown]
  - Medication error [Unknown]
  - Migraine [Unknown]
  - Nightmare [Unknown]
  - Arthritis [Unknown]
  - Off label use [Unknown]
  - Pain [Unknown]
  - Pain in extremity [Unknown]
  - Palpitations [Unknown]
  - Parosmia [Unknown]
  - Pulmonary embolism [Unknown]
  - Pyrexia [Unknown]
  - Rash [Unknown]
  - Rectal haemorrhage [Unknown]
  - Rhinitis [Unknown]
  - Burns second degree [Unknown]
  - Somnolence [Unknown]
  - Stress [Unknown]
  - Swollen tongue [Unknown]
  - Systemic lupus erythematosus [Unknown]
  - Tinnitus [Unknown]
  - Tubulointerstitial nephritis [Unknown]
  - Vertigo [Unknown]
  - Weight decreased [Unknown]
  - Bronchiectasis [Unknown]
  - COVID-19 [Unknown]
  - Cardiac murmur [Unknown]
  - Catarrh [Unknown]
  - Cerebrovascular accident [Unknown]
